FAERS Safety Report 7206057-7 (Version None)
Quarter: 2010Q4

REPORT INFORMATION
  Report Type: 
  Country: None (occurrence: None)
  Receive Date: 20101229
  Receipt Date: 20101229
  Transmission Date: 20110411
  Serious: Yes (Other)
  Sender: FDA-Public Use
  Company Number: None

PATIENT
  Sex: Female
  Weight: 49.8957 kg

DRUGS (1)
  1. YAZ [Suspect]
     Dates: start: 20101015, end: 20101028

REACTIONS (3)
  - HAEMORRHAGE [None]
  - MENSTRUATION IRREGULAR [None]
  - MOOD ALTERED [None]
